FAERS Safety Report 25624256 (Version 1)
Quarter: 2025Q3

REPORT INFORMATION
  Report Type: Spontaneous
  Country: US (occurrence: US)
  Receive Date: 20250730
  Receipt Date: 20250730
  Transmission Date: 20251021
  Serious: Yes (Hospitalization)
  Sender: MYLAN
  Company Number: US-MYLANLABS-2025M1063154

PATIENT
  Age: 62 Year
  Sex: Female

DRUGS (8)
  1. ARGATROBAN [Suspect]
     Active Substance: ARGATROBAN
     Indication: Heparin-induced thrombocytopenia
  2. ARGATROBAN [Suspect]
     Active Substance: ARGATROBAN
     Route: 065
  3. ARGATROBAN [Suspect]
     Active Substance: ARGATROBAN
     Route: 065
  4. ARGATROBAN [Suspect]
     Active Substance: ARGATROBAN
  5. BIVALIRUDIN [Suspect]
     Active Substance: BIVALIRUDIN
     Indication: Heparin-induced thrombocytopenia
  6. BIVALIRUDIN [Suspect]
     Active Substance: BIVALIRUDIN
     Route: 065
  7. BIVALIRUDIN [Suspect]
     Active Substance: BIVALIRUDIN
     Route: 065
  8. BIVALIRUDIN [Suspect]
     Active Substance: BIVALIRUDIN

REACTIONS (1)
  - Drug ineffective [Unknown]
